FAERS Safety Report 6593093-7 (Version None)
Quarter: 2010Q1

REPORT INFORMATION
  Report Type: 
  Country: None (occurrence: None)
  Receive Date: 20100222
  Receipt Date: 20100210
  Transmission Date: 20100710
  Serious: Yes (Hospitalization)
  Sender: FDA-Public Use
  Company Number: CA-GENZYME-FABR-1001196

PATIENT
  Sex: Male
  Weight: 81.633 kg

DRUGS (15)
  1. FABRAZYME [Suspect]
     Indication: FABRY'S DISEASE
     Dosage: 85 MG, Q2W
     Route: 042
     Dates: start: 20020507
  2. ACETYLSALICYLIC ACID [Concomitant]
     Indication: PROPHYLAXIS
     Dosage: 80 MG, QD
     Dates: start: 20061122, end: 20100206
  3. ESOMEPRAZOLE [Concomitant]
     Indication: DRUG USE FOR UNKNOWN INDICATION
     Dosage: 40 MG, QD
     Dates: start: 20080815
  4. ALBUTEROL [Concomitant]
     Indication: ASTHMA
  5. ADVAIR DISKUS 100/50 [Concomitant]
     Indication: ASTHMA
  6. ADVAIR DISKUS 100/50 [Concomitant]
     Indication: CHRONIC OBSTRUCTIVE PULMONARY DISEASE
  7. TIOTROPIUM [Concomitant]
     Indication: CHRONIC OBSTRUCTIVE PULMONARY DISEASE
  8. WARFARIN SODIUM [Concomitant]
     Indication: DRUG USE FOR UNKNOWN INDICATION
     Dosage: 3.5 MG, QD
     Dates: end: 20100206
  9. CORDARONE [Concomitant]
     Indication: ATRIAL FLUTTER
     Dosage: 200 MG, QD
     Dates: start: 20100208
  10. CORDARONE [Concomitant]
     Dosage: 400 MG, BID
     Dates: end: 20100208
  11. METOPROLOL TARTRATE [Concomitant]
     Indication: DRUG USE FOR UNKNOWN INDICATION
     Dosage: 25 MG, BID
     Dates: start: 20080815
  12. LOSARTAN POTASSIUM [Concomitant]
     Indication: DRUG USE FOR UNKNOWN INDICATION
     Dosage: 50 MG, QD
     Dates: start: 20060120
  13. MOXIFLOXACIN HCL [Concomitant]
     Indication: CATARACT OPERATION
     Dosage: 1 GTT, BID
     Route: 047
     Dates: start: 20100203
  14. TRAVATAN [Concomitant]
     Indication: CATARACT OPERATION
     Dosage: 1 GTT, QD
     Route: 047
     Dates: start: 20100203
  15. PREDNISONE [Concomitant]
     Indication: CATARACT OPERATION
     Dosage: 1 GTT, QID
     Dates: start: 20100203

REACTIONS (3)
  - CATARACT [None]
  - FATIGUE [None]
  - SMALL INTESTINAL HAEMORRHAGE [None]
